FAERS Safety Report 9156926 (Version 1)
Quarter: 2013Q1

REPORT INFORMATION
  Report Type: Spontaneous
  Country: US (occurrence: None)
  Receive Date: 20130308
  Receipt Date: 20130308
  Transmission Date: 20140127
  Serious: Yes (Hospitalization)
  Sender: FDA-Public Use
  Company Number: None

PATIENT
  Sex: Male
  Weight: 55.3 kg

DRUGS (3)
  1. 5 FLUOROURACIL [Suspect]
  2. IRINOTECAN [Suspect]
  3. LEUCOVORIN CALCIUM [Suspect]

REACTIONS (2)
  - Procedural pain [None]
  - Diarrhoea [None]
